FAERS Safety Report 10375275 (Version 1)
Quarter: 2014Q3

REPORT INFORMATION
  Report Type: Report from Study
  Country: US (occurrence: US)
  Receive Date: 20140811
  Receipt Date: 20140811
  Transmission Date: 20150326
  Serious: Yes (Hospitalization)
  Sender: FDA-Public Use
  Company Number: US-SA-2014SA105198

PATIENT
  Age: 74 Year
  Sex: Female

DRUGS (1)
  1. LANTUS [Suspect]
     Active Substance: INSULIN GLARGINE
     Indication: DIABETES MELLITUS
     Route: 065

REACTIONS (6)
  - Hypoaesthesia [Unknown]
  - Partial seizures [Unknown]
  - Fall [Unknown]
  - Muscular weakness [Unknown]
  - Hypoglycaemia [Unknown]
  - Haemorrhage [Unknown]
